FAERS Safety Report 21858824 (Version 2)
Quarter: 2023Q1

REPORT INFORMATION
  Report Type: Spontaneous
  Country: US (occurrence: US)
  Receive Date: 20230113
  Receipt Date: 20230119
  Transmission Date: 20230417
  Serious: No
  Sender: FDA-Public Use
  Company Number: US-SANOFI-01440976

PATIENT
  Age: 47 Year
  Sex: Female

DRUGS (1)
  1. LANTUS SOLOSTAR [Suspect]
     Active Substance: INSULIN GLARGINE
     Indication: Type 2 diabetes mellitus
     Dosage: 60 UNITS HS AND DRUG TREATMENT DURATION:NEW PENS

REACTIONS (2)
  - Blood glucose abnormal [Unknown]
  - Device mechanical issue [Unknown]
